FAERS Safety Report 5733327-1 (Version None)
Quarter: 2008Q2

REPORT INFORMATION
  Report Type: 
  Country: None (occurrence: None)
  Receive Date: 20080507
  Receipt Date: 20080429
  Transmission Date: 20081010
  Serious: Yes (Hospitalization, Other)
  Sender: FDA-Public Use
  Company Number: 2008SP008063

PATIENT
  Age: 44 Year
  Sex: Female

DRUGS (2)
  1. PEG-INTRON [Suspect]
     Indication: HEPATITIS C
     Dates: start: 20080413
  2. REBETOL [Suspect]
     Dosage: PO
     Route: 048
     Dates: start: 20080413

REACTIONS (5)
  - CHEST PAIN [None]
  - DARK CIRCLES UNDER EYES [None]
  - EPISTAXIS [None]
  - HAEMATEMESIS [None]
  - SKIN DISORDER [None]
